FAERS Safety Report 6750511-9 (Version None)
Quarter: 2010Q2

REPORT INFORMATION
  Report Type: 
  Country: None (occurrence: None)
  Receive Date: 20100527
  Receipt Date: 20100519
  Transmission Date: 20101027
  Serious: No
  Sender: FDA-Public Use
  Company Number: 009438

PATIENT

DRUGS (4)
  1. PLETAL [Suspect]
     Dosage: 100 MG, DAILY DOSE; ORAL
     Route: 048
  2. MEVALOTIN (PRAZASTATIN SODIUM) [Concomitant]
  3. LENDORMIN (BROTIZOLAM) TABLET [Concomitant]
  4. FUTHAN (NAFAMOSTAT MESILATE) INJECTION [Concomitant]

REACTIONS (1)
  - NEUTROPENIA [None]
